FAERS Safety Report 9757379 (Version 1)
Quarter: 2013Q4

REPORT INFORMATION
  Report Type: Spontaneous
  Country: US (occurrence: US)
  Receive Date: 20131214
  Receipt Date: 20131214
  Transmission Date: 20140711
  Serious: No
  Sender: FDA-Public Use
  Company Number: US-009507513-1312USA003170

PATIENT
  Sex: Female

DRUGS (3)
  1. TRUSOPT [Suspect]
     Indication: INTRAOCULAR PRESSURE INCREASED
     Dosage: ONE DROP IN MORNING AND ONE AT NIGHT FOR BOTH EYES
     Route: 047
  2. TIMOPTIC [Suspect]
     Dosage: UNK
     Dates: end: 2012
  3. LUMIGAN [Concomitant]
     Dosage: UNK
     Dates: start: 1987

REACTIONS (4)
  - Visual impairment [Recovering/Resolving]
  - Abnormal sensation in eye [Recovering/Resolving]
  - Eye irritation [Recovering/Resolving]
  - Eye pain [Recovering/Resolving]
